FAERS Safety Report 6880334-1 (Version None)
Quarter: 2010Q3

REPORT INFORMATION
  Report Type: 
  Country: None (occurrence: None)
  Receive Date: 20100728
  Receipt Date: 20100715
  Transmission Date: 20110219
  Serious: Yes (Other)
  Sender: FDA-Public Use
  Company Number: BR-PFIZER INC-2010088631

PATIENT
  Age: 62 Year
  Sex: Female

DRUGS (4)
  1. CHAMPIX [Suspect]
     Indication: SMOKING CESSATION THERAPY
     Dosage: UNK
     Route: 048
     Dates: start: 20100714
  2. CLONAZEPAM [Concomitant]
     Indication: BIPOLAR DISORDER
     Dosage: UNK
     Dates: start: 20100515
  3. SEROQUEL [Concomitant]
     Dosage: UNK
     Dates: start: 20020715
  4. LEXOTAN [Concomitant]
     Dosage: UNK
     Dates: start: 20020715

REACTIONS (1)
  - ABDOMINAL RIGIDITY [None]
